FAERS Safety Report 7263215-3 (Version None)
Quarter: 2011Q1

REPORT INFORMATION
  Report Type: 
  Country: None (occurrence: None)
  Receive Date: 20110130
  Receipt Date: 20101013
  Transmission Date: 20110831
  Serious: No
  Sender: FDA-Public Use
  Company Number: US-ABBOTT-10P-163-0678163-00

PATIENT
  Age: 60 Year
  Sex: Male

DRUGS (3)
  1. BISOPROLOL [Concomitant]
     Indication: HYPERTENSION
  2. ISONIAZID [Concomitant]
     Indication: TUBERCULOSIS
  3. HUMIRA [Suspect]
     Indication: PSORIASIS
     Dates: start: 20100901

REACTIONS (3)
  - INJECTION SITE SWELLING [None]
  - INJECTION SITE PRURITUS [None]
  - INJECTION SITE ERYTHEMA [None]
